FAERS Safety Report 12969556 (Version 8)
Quarter: 2017Q1

REPORT INFORMATION
  Report Type: Report from Study
  Country: AU (occurrence: AU)
  Receive Date: 20161123
  Receipt Date: 20170331
  Transmission Date: 20170428
  Serious: Yes (Hospitalization, Other)
  Sender: FDA-Public Use
  Company Number: PHHY2016AU114906

PATIENT
  Age: 82 Year
  Sex: Male

DRUGS (3)
  1. DULCOLAX NOS [Concomitant]
     Active Substance: BISACODYL OR DOCUSATE SODIUM
     Indication: PRODUCT USED FOR UNKNOWN INDICATION
     Dosage: 20 OT, QD
     Route: 065
  2. SANDOSTATIN LAR DEPOT [Suspect]
     Active Substance: OCTREOTIDE ACETATE
     Indication: NEUROENDOCRINE TUMOUR
     Dosage: 20 MG, UNK
     Route: 030
  3. DULCOLAX NOS [Concomitant]
     Active Substance: BISACODYL OR DOCUSATE SODIUM
     Dosage: 30 OT, QD
     Route: 065

REACTIONS (24)
  - Tremor [Not Recovered/Not Resolved]
  - Orthostatic hypotension [Recovered/Resolved]
  - Dizziness [Recovered/Resolved]
  - Lower urinary tract symptoms [Unknown]
  - Paraesthesia [Recovered/Resolved]
  - Abdominal pain [Not Recovered/Not Resolved]
  - Sinus bradycardia [Recovered/Resolved]
  - Musculoskeletal stiffness [Recovered/Resolved]
  - Hypotension [Recovered/Resolved]
  - Middle insomnia [Not Recovered/Not Resolved]
  - Hyperventilation [Unknown]
  - Tension headache [Recovered/Resolved]
  - Headache [Not Recovered/Not Resolved]
  - Hypophagia [Recovered/Resolved]
  - Dehydration [Recovered/Resolved]
  - Malignant neoplasm progression [Not Recovered/Not Resolved]
  - Chest pain [Unknown]
  - Night sweats [Not Recovered/Not Resolved]
  - Malaise [Recovered/Resolved]
  - Gait disturbance [Recovered/Resolved]
  - Urinary retention [Unknown]
  - Sensory disturbance [Unknown]
  - Feeling abnormal [Unknown]
  - Concomitant disease aggravated [Unknown]

NARRATIVE: CASE EVENT DATE: 20161207
